FAERS Safety Report 21739077 (Version 1)
Quarter: 2022Q4

REPORT INFORMATION
  Report Type: Spontaneous
  Country: IT (occurrence: IT)
  Receive Date: 20221216
  Receipt Date: 20221216
  Transmission Date: 20230113
  Serious: Yes (Other)
  Sender: FDA-Public Use
  Company Number: None

PATIENT
  Age: 63 Year
  Sex: Male
  Weight: 72 kg

DRUGS (9)
  1. CAPECITABINE [Suspect]
     Active Substance: CAPECITABINE
     Indication: Colon cancer
     Dates: start: 20220304
  2. OXALIPLATIN [Suspect]
     Active Substance: OXALIPLATIN
     Indication: Colon cancer
     Dates: start: 20220304
  3. LACTULOSE [Concomitant]
     Active Substance: LACTULOSE
  4. LASIX [Concomitant]
     Active Substance: FUROSEMIDE
  5. CORDARONE [Concomitant]
     Active Substance: AMIODARONE HYDROCHLORIDE
  6. PANTOPRAZOLE [Concomitant]
     Active Substance: PANTOPRAZOLE
  7. XARELTO [Concomitant]
     Active Substance: RIVAROXABAN
  8. BISOPROLOL [Concomitant]
     Active Substance: BISOPROLOL
  9. FERROUS SULFATE [Concomitant]
     Active Substance: FERROUS SULFATE

REACTIONS (5)
  - Paraesthesia [Recovering/Resolving]
  - Arthralgia [Recovering/Resolving]
  - Haematochezia [Recovering/Resolving]
  - Dysaesthesia [Recovering/Resolving]
  - Abdominal pain [Recovering/Resolving]

NARRATIVE: CASE EVENT DATE: 20220307
